FAERS Safety Report 6917056-4 (Version None)
Quarter: 2010Q3

REPORT INFORMATION
  Report Type: 
  Country: None (occurrence: None)
  Receive Date: 20100810
  Receipt Date: 20100803
  Transmission Date: 20110219
  Serious: Yes (Death)
  Sender: FDA-Public Use
  Company Number: A0874642A

PATIENT
  Sex: Female
  Weight: 60 kg

DRUGS (7)
  1. SERETIDE [Suspect]
     Indication: CHRONIC OBSTRUCTIVE PULMONARY DISEASE
     Dosage: 2PUFF TWICE PER DAY
     Route: 055
     Dates: start: 20100318, end: 20100611
  2. SPIRIVA [Concomitant]
     Dates: start: 20091201, end: 20100611
  3. BAMIFIX [Concomitant]
     Dosage: 1TAB TWICE PER DAY
     Dates: start: 20091201, end: 20100611
  4. GLIBENCLAMIDE [Concomitant]
     Dosage: 1TAB PER DAY
     Dates: start: 20080101, end: 20100611
  5. FENOTEROL [Concomitant]
  6. SODIUM CHLORIDE 0.9% [Concomitant]
  7. OXYGEN [Concomitant]

REACTIONS (3)
  - CHRONIC OBSTRUCTIVE PULMONARY DISEASE [None]
  - MULTI-ORGAN FAILURE [None]
  - PNEUMONIA [None]
